FAERS Safety Report 6684173-6 (Version None)
Quarter: 2010Q2

REPORT INFORMATION
  Report Type: 
  Country: None (occurrence: None)
  Receive Date: 20100416
  Receipt Date: 20100413
  Transmission Date: 20101027
  Serious: Yes (Death, Other)
  Sender: FDA-Public Use
  Company Number: PHHY2010MX04398

PATIENT
  Sex: Female

DRUGS (2)
  1. DIOVAN HCT [Suspect]
     Indication: HYPERTENSION
     Dosage: 1 TABLET/DAY
     Route: 048
     Dates: start: 20090601
  2. GALVUS MET [Suspect]
     Dosage: 1 TABLET/DAY

REACTIONS (6)
  - FALL [None]
  - HYPERTENSION [None]
  - PULMONARY EMBOLISM [None]
  - RIB FRACTURE [None]
  - TYPE 2 DIABETES MELLITUS [None]
  - VENOUS INSUFFICIENCY [None]
